FAERS Safety Report 15590164 (Version 1)
Quarter: 2018Q4

REPORT INFORMATION
  Report Type: Spontaneous
  Country: US (occurrence: US)
  Receive Date: 20181106
  Receipt Date: 20181106
  Transmission Date: 20190205
  Serious: No
  Sender: FDA-Public Use
  Company Number: US-GLAXOSMITHKLINE-US2018197589

PATIENT
  Age: 83 Year
  Sex: Female

DRUGS (1)
  1. PREVACID 24 HR [Suspect]
     Active Substance: LANSOPRAZOLE
     Indication: NAUSEA
     Dosage: UNK UNK, QD

REACTIONS (2)
  - Off label use [Unknown]
  - Incorrect product administration duration [Unknown]
